FAERS Safety Report 15106991 (Version 1)
Quarter: 2018Q3

REPORT INFORMATION
  Report Type: Spontaneous
  Country: AU (occurrence: AU)
  Receive Date: 20180704
  Receipt Date: 20180704
  Transmission Date: 20181010
  Serious: Yes (Other)
  Sender: FDA-Public Use
  Company Number: AU-ASTRAZENECA-2018SE74206

PATIENT
  Age: 77 Year
  Sex: Male
  Weight: 94 kg

DRUGS (8)
  1. PANADOL [Concomitant]
     Active Substance: ACETAMINOPHEN
     Indication: PAIN
  2. BYDUREON [Suspect]
     Active Substance: EXENATIDE
     Indication: DIABETES MELLITUS
     Dosage: 2
     Route: 058
     Dates: start: 20180515, end: 20180522
  3. VIDAGLIPTIN [Concomitant]
     Indication: DIABETES MELLITUS
     Dosage: 50/1000
     Route: 048
  4. METFORMIN [Concomitant]
     Active Substance: METFORMIN HYDROCHLORIDE
     Indication: DIABETES MELLITUS
     Dosage: 50/1000
     Route: 048
  5. TESTOGEL [Concomitant]
     Active Substance: TESTOSTERONE
     Indication: BLOOD TESTOSTERONE
     Dosage: 50.0MG UNKNOWN
     Route: 048
  6. OXAZEPAM. [Concomitant]
     Active Substance: OXAZEPAM
  7. AMLODIPINE/VALSARTAN/HCT [Concomitant]
     Indication: CARDIAC DISORDER
     Dosage: 19 /160/12.5 MG PRN
     Route: 048
  8. ATENOLOL. [Concomitant]
     Active Substance: ATENOLOL
     Indication: BLOOD PRESSURE ABNORMAL
     Dosage: 1.0G UNKNOWN
     Route: 048

REACTIONS (1)
  - Hypertension [Recovered/Resolved]

NARRATIVE: CASE EVENT DATE: 20180515
